FAERS Safety Report 6324427-6 (Version None)
Quarter: 2009Q3

REPORT INFORMATION
  Report Type: 
  Country: None (occurrence: None)
  Receive Date: 20090824
  Receipt Date: 20090428
  Transmission Date: 20100115
  Serious: No
  Sender: FDA-Public Use
  Company Number: US-ABBOTT-09P-163-0570593-00

PATIENT
  Sex: Male

DRUGS (9)
  1. NIASPAN [Suspect]
     Indication: HYPERCHOLESTEROLAEMIA
     Route: 048
     Dates: start: 20090401
  2. M.V.I. [Concomitant]
     Indication: DRUG USE FOR UNKNOWN INDICATION
  3. LOVAZA [Concomitant]
     Indication: DRUG USE FOR UNKNOWN INDICATION
  4. ASPIRIN [Concomitant]
     Indication: DRUG USE FOR UNKNOWN INDICATION
     Route: 048
  5. METFORMIN HCL [Concomitant]
     Indication: DRUG USE FOR UNKNOWN INDICATION
  6. ACTOS [Concomitant]
     Indication: DRUG USE FOR UNKNOWN INDICATION
  7. GLIMEPIRIDE [Concomitant]
     Indication: DRUG USE FOR UNKNOWN INDICATION
  8. TRICOR [Concomitant]
     Indication: DRUG USE FOR UNKNOWN INDICATION
  9. PRAVASTATIN [Concomitant]
     Indication: DRUG USE FOR UNKNOWN INDICATION

REACTIONS (2)
  - FLUSHING [None]
  - SKIN BURNING SENSATION [None]
